FAERS Safety Report 14177013 (Version 1)
Quarter: 2017Q4

REPORT INFORMATION
  Report Type: Spontaneous
  Country: US (occurrence: US)
  Receive Date: 20171110
  Receipt Date: 20171110
  Transmission Date: 20180321
  Serious: Yes (Disabling)
  Sender: FDA-Public Use
  Company Number: None

PATIENT
  Age: 72 Year
  Sex: Female
  Weight: 53.55 kg

DRUGS (1)
  1. PROPAFENONE HCL [Suspect]
     Active Substance: PROPAFENONE HYDROCHLORIDE
     Indication: PALPITATIONS
     Route: 048
     Dates: start: 20171030, end: 20171110

REACTIONS (15)
  - Dysphonia [None]
  - Headache [None]
  - Balance disorder [None]
  - Swelling [None]
  - Anxiety [None]
  - Peripheral coldness [None]
  - Dysgeusia [None]
  - Vision blurred [None]
  - Asthenia [None]
  - Nausea [None]
  - Myalgia [None]
  - Diarrhoea [None]
  - Fatigue [None]
  - Chest discomfort [None]
  - Arthralgia [None]

NARRATIVE: CASE EVENT DATE: 20171101
